FAERS Safety Report 7913233-4 (Version None)
Quarter: 2011Q4

REPORT INFORMATION
  Report Type: 
  Country: None (occurrence: None)
  Receive Date: 20111114
  Receipt Date: 20111103
  Transmission Date: 20120403
  Serious: Yes (Other)
  Sender: FDA-Public Use
  Company Number: DE-ASTRAZENECA-2011SE66587

PATIENT
  Age: 79 Year
  Sex: Male

DRUGS (3)
  1. SIMVASTATIN [Concomitant]
  2. BRILIQUE [Suspect]
     Route: 048
  3. ANTIHYPERTENSIVES [Concomitant]

REACTIONS (1)
  - CIRCULATORY COLLAPSE [None]
